FAERS Safety Report 13845267 (Version 2)
Quarter: 2017Q3

REPORT INFORMATION
  Report Type: Spontaneous
  Country: BR (occurrence: BR)
  Receive Date: 20170808
  Receipt Date: 20170925
  Transmission Date: 20171127
  Serious: Yes (Other)
  Sender: FDA-Public Use
  Company Number: BR-PFIZER INC-2017249134

PATIENT
  Age: 85 Year
  Sex: Female

DRUGS (5)
  1. DOXYCYCLINE. [Suspect]
     Active Substance: DOXYCYCLINE
     Indication: PNEUMONIA
     Dosage: UNK, 2X/DAY (EVERY 12 HOURS)
     Dates: start: 201707
  2. VITALUX PLUS LUTEIN OMEGA 3 [Concomitant]
     Active Substance: MINERALS\OMEGA-3 FATTY ACIDS\VITAMINS
     Dosage: UNK
     Dates: start: 1997
  3. OSTEOFORM /00751501/ [Concomitant]
     Active Substance: CALCIUM
     Dosage: UNK
     Dates: start: 2002
  4. PREDSIN [Concomitant]
     Active Substance: CHLORAMPHENICOL\PREDNISOLONE
     Dosage: UNK
     Dates: start: 2012
  5. DIVELOL [Concomitant]
     Dosage: UNK
     Dates: start: 1997

REACTIONS (2)
  - Tinnitus [Not Recovered/Not Resolved]
  - Deafness unilateral [Recovering/Resolving]
